FAERS Safety Report 4495276-9 (Version None)
Quarter: 2004Q4

REPORT INFORMATION
  Report Type: 
  Country: None (occurrence: None)
  Receive Date: 20041108
  Receipt Date: 20040823
  Transmission Date: 20050328
  Serious: No
  Sender: FDA-Public Use
  Company Number: US-GLAXOSMITHKLINE-A0523089A

PATIENT

DRUGS (4)
  1. AVANDAMET [Suspect]
     Route: 048
  2. AVAPRO [Concomitant]
  3. LEVOXYL [Concomitant]
     Route: 065
  4. CLARINEX [Concomitant]

REACTIONS (1)
  - ILL-DEFINED DISORDER [None]
